FAERS Safety Report 14198534 (Version 1)
Quarter: 2017Q4

REPORT INFORMATION
  Report Type: Spontaneous
  Country: FR (occurrence: FR)
  Receive Date: 20171117
  Receipt Date: 20171117
  Transmission Date: 20180321
  Serious: Yes (Other)
  Sender: FDA-Public Use
  Company Number: FR-MERCK KGAA-2034484

PATIENT
  Sex: Female

DRUGS (1)
  1. NOVOTHYROX [Suspect]
     Active Substance: LEVOTHYROXINE SODIUM
     Indication: PRODUCT USED FOR UNKNOWN INDICATION

REACTIONS (12)
  - Memory impairment [None]
  - Malaise [None]
  - Headache [None]
  - Diarrhoea [None]
  - Hyperthyroidism [None]
  - Asthenia [None]
  - Fatigue [None]
  - Abdominal pain [None]
  - Speech disorder [None]
  - Blood pressure fluctuation [None]
  - Nausea [None]
  - Vomiting [None]
